FAERS Safety Report 7939128-8 (Version None)
Quarter: 2011Q4

REPORT INFORMATION
  Report Type: 
  Country: None (occurrence: None)
  Receive Date: 20111124
  Receipt Date: 20111114
  Transmission Date: 20120403
  Serious: Yes (Other)
  Sender: FDA-Public Use
  Company Number: AR-ROCHE-1013919

PATIENT
  Sex: Female

DRUGS (3)
  1. INSULIN [Concomitant]
  2. LUCENTIS [Suspect]
     Indication: DIABETIC RETINOPATHY
     Dosage: SIX TOTAL AMPOULES THREE IN EACH EYE.
     Route: 050
     Dates: start: 20100101
  3. LUCENTIS [Suspect]
     Route: 050
     Dates: start: 20110601

REACTIONS (2)
  - BLOOD GLUCOSE INCREASED [None]
  - BLOOD PRESSURE INCREASED [None]
